FAERS Safety Report 9523494 (Version 3)
Quarter: 2013Q3

REPORT INFORMATION
  Report Type: Spontaneous
  Country: US (occurrence: US)
  Receive Date: 20130913
  Receipt Date: 20130926
  Transmission Date: 20140515
  Serious: Yes (Hospitalization)
  Sender: FDA-Public Use
  Company Number: US-GLAXOSMITHKLINE-A1041402A

PATIENT
  Age: 85 Year
  Sex: Female

DRUGS (15)
  1. ADVAIR [Suspect]
     Indication: PRODUCT USED FOR UNKNOWN INDICATION
     Dosage: 1PUFF PER DAY
     Route: 055
  2. SPIRIVA [Concomitant]
  3. LASIX [Concomitant]
  4. CARVEDILOL [Concomitant]
  5. LOSARTAN [Concomitant]
  6. LEXAPRO [Concomitant]
  7. SPIRONOLACTONE [Concomitant]
  8. CLORAZEPATE [Concomitant]
  9. PRAVASTATIN [Concomitant]
  10. WARFARIN [Concomitant]
  11. TRAVATAN [Concomitant]
  12. COMBIGAN [Concomitant]
  13. PRILOSEC [Concomitant]
  14. PRO-AIR [Concomitant]
  15. UNSPECIFIED PAIN MEDICATION [Concomitant]

REACTIONS (8)
  - Thrombosis [Not Recovered/Not Resolved]
  - Cardiac failure congestive [Not Recovered/Not Resolved]
  - Dyspnoea [Not Recovered/Not Resolved]
  - Hypotension [Not Recovered/Not Resolved]
  - Visual impairment [Not Recovered/Not Resolved]
  - Drug administration error [Not Recovered/Not Resolved]
  - Malaise [Not Recovered/Not Resolved]
  - International normalised ratio decreased [Not Recovered/Not Resolved]
